FAERS Safety Report 17630169 (Version 1)
Quarter: 2020Q2

REPORT INFORMATION
  Report Type: Spontaneous
  Country: US (occurrence: US)
  Receive Date: 20200403
  Receipt Date: 20200403
  Transmission Date: 20200713
  Serious: Yes (Hospitalization, Disabling)
  Sender: FDA-Public Use
  Company Number: None

PATIENT
  Age: 84 Week
  Sex: Female
  Weight: 74.84 kg

DRUGS (1)
  1. ELIQUIS [Suspect]
     Active Substance: APIXABAN
     Indication: ANTICOAGULANT THERAPY
     Dosage: ?          QUANTITY:1 PILL;OTHER FREQUENCY:9AM + 9PM;?
     Route: 048

REACTIONS (4)
  - Paraesthesia [None]
  - Discomfort [None]
  - Fall [None]
  - Internal haemorrhage [None]
